FAERS Safety Report 14611137 (Version 1)
Quarter: 2018Q1

REPORT INFORMATION
  Report Type: Spontaneous
  Country: IN (occurrence: IN)
  Receive Date: 20180308
  Receipt Date: 20180308
  Transmission Date: 20180509
  Serious: Yes (Other)
  Sender: FDA-Public Use
  Company Number: IN-CONCORDIA PHARMACEUTICALS INC.-GSH201803-000919

PATIENT
  Sex: Female

DRUGS (3)
  1. AZATHIOPRINE. [Suspect]
     Active Substance: AZATHIOPRINE
  2. PREDNISOLONE. [Suspect]
     Active Substance: PREDNISOLONE
  3. CYCLOSPORINE. [Suspect]
     Active Substance: CYCLOSPORINE

REACTIONS (1)
  - Invasive ductal breast carcinoma [Unknown]
